FAERS Safety Report 15894922 (Version 1)
Quarter: 2019Q1

REPORT INFORMATION
  Report Type: Spontaneous
  Country: US (occurrence: US)
  Receive Date: 20190131
  Receipt Date: 20190131
  Transmission Date: 20190417
  Serious: No
  Sender: FDA-Public Use
  Company Number: US-ELI_LILLY_AND_COMPANY-US201901013735

PATIENT
  Age: 65 Year
  Sex: Female

DRUGS (3)
  1. LANTUS [Concomitant]
     Active Substance: INSULIN GLARGINE
     Indication: PRODUCT USED FOR UNKNOWN INDICATION
     Dosage: UNK UNK, UNKNOWN (AT NIGHT)
     Route: 065
  2. HUMALOG [Suspect]
     Active Substance: INSULIN LISPRO
     Indication: PRODUCT USED FOR UNKNOWN INDICATION
     Dosage: UNK UNK, PRN (TAKES INSULIN MORNING BEFORE BREAKFAST IF NUMBERS ARE HIGH)
     Route: 065
  3. HUMALOG [Suspect]
     Active Substance: INSULIN LISPRO
     Dosage: UNK UNK, PRN (TAKES INSULIN MORNING BEFORE BREAKFAST IF NUMBERS ARE HIGH)
     Route: 065

REACTIONS (2)
  - Blood glucose increased [Recovering/Resolving]
  - Blood glucose decreased [Unknown]

NARRATIVE: CASE EVENT DATE: 20190128
